FAERS Safety Report 8598202-6 (Version None)
Quarter: 2012Q3

REPORT INFORMATION
  Report Type: 
  Country: None (occurrence: None)
  Receive Date: 20120802
  Receipt Date: 20120719
  Transmission Date: 20120928
  Serious: Yes (Other)
  Sender: FDA-Public Use
  Company Number: 2012S1000202

PATIENT
  Age: 64 Year
  Sex: Male
  Weight: 102.06 kg

DRUGS (5)
  1. ONGLYZA [Concomitant]
  2. LIVALO [Suspect]
     Indication: BLOOD CHOLESTEROL INCREASED
     Dosage: 2 MG;1X;PO
     Route: 048
     Dates: start: 20111201, end: 20120201
  3. FENOFIBRATE [Concomitant]
  4. WELCHOL [Concomitant]
  5. LOVAZA [Concomitant]

REACTIONS (6)
  - COLITIS [None]
  - HAEMATOCHEZIA [None]
  - BACK PAIN [None]
  - MYALGIA [None]
  - ABASIA [None]
  - CONDITION AGGRAVATED [None]
